FAERS Safety Report 10676560 (Version 2)
Quarter: 2015Q1

REPORT INFORMATION
  Report Type: Report from Study
  Country: DE (occurrence: DE)
  Receive Date: 20141226
  Receipt Date: 20150115
  Transmission Date: 20150720
  Serious: No
  Sender: FDA-Public Use
  Company Number: PHHY2014DE167465

PATIENT
  Sex: Male

DRUGS (9)
  1. AMN107 [Suspect]
     Active Substance: NILOTINIB
     Dosage: 400 MG, QD
     Route: 048
  2. MITOMYCIN. [Concomitant]
     Active Substance: MITOMYCIN
     Indication: PRODUCT USED FOR UNKNOWN INDICATION
     Dosage: 20 OT, UNK
     Route: 065
     Dates: start: 20110406, end: 20110609
  3. BISOPROLOL [Concomitant]
     Active Substance: BISOPROLOL
     Indication: PRODUCT USED FOR UNKNOWN INDICATION
     Dosage: 10 OT, UNK
     Route: 065
  4. PANTOPRAZOLE [Concomitant]
     Active Substance: PANTOPRAZOLE SODIUM
     Indication: PRODUCT USED FOR UNKNOWN INDICATION
     Dosage: 40 OT, UNK
     Route: 065
  5. AMN107 [Suspect]
     Active Substance: NILOTINIB
     Indication: CHRONIC MYELOID LEUKAEMIA
     Dosage: 600 MG, QD
     Route: 048
     Dates: start: 20130514, end: 20140620
  6. HUMALOG [Concomitant]
     Active Substance: INSULIN LISPRO
     Indication: PRODUCT USED FOR UNKNOWN INDICATION
     Route: 065
  7. AMN107 [Suspect]
     Active Substance: NILOTINIB
     Dosage: 400 MG, QD
     Route: 048
  8. ASPIRIN. [Concomitant]
     Active Substance: ASPIRIN
     Indication: PRODUCT USED FOR UNKNOWN INDICATION
     Dosage: 100 OT, UNK
     Route: 065
     Dates: start: 2011
  9. AMN107 [Suspect]
     Active Substance: NILOTINIB
     Dosage: 450 MG, QD
     Route: 048

REACTIONS (2)
  - Nail disorder [Recovered/Resolved]
  - Dysgeusia [Recovered/Resolved]

NARRATIVE: CASE EVENT DATE: 201401
